FAERS Safety Report 9935220 (Version 1)
Quarter: 2014Q1

REPORT INFORMATION
  Report Type: Spontaneous
  Country: DK (occurrence: DK)
  Receive Date: 20140228
  Receipt Date: 20140228
  Transmission Date: 20141002
  Serious: Yes (Other)
  Sender: FDA-Public Use
  Company Number: DK-EISAI INC-E7389-04788-SPO-DK

PATIENT
  Sex: Female

DRUGS (11)
  1. HALAVEN [Suspect]
     Indication: BREAST CANCER
     Dosage: UNKNOWN
     Route: 041
  2. FEMAR [Suspect]
     Indication: BREAST CANCER
     Dosage: UNKNOWN
     Route: 065
  3. GEMZAR [Suspect]
     Indication: BREAST CANCER
     Dosage: UNKNOWN
     Route: 065
  4. HERCEPTIN [Suspect]
     Indication: BREAST CANCER
     Dosage: UNKNOWN
     Route: 065
  5. LAPATINIB [Suspect]
     Indication: BREAST CANCER
     Dosage: UNKNOWN
     Route: 065
  6. TAMOXIFEN [Suspect]
     Indication: BREAST CANCER
     Dosage: UNKNOWN
     Route: 065
  7. TAXOL [Suspect]
     Indication: BREAST CANCER
     Dosage: UNKNOWN
     Route: 065
  8. TAXOTERE [Suspect]
     Indication: BREAST CANCER
     Dosage: UNKNOWN
     Route: 065
  9. VINORELBINE [Suspect]
     Indication: BREAST CANCER
     Dosage: UNKNOWN
     Route: 065
  10. XELODA [Suspect]
     Indication: BREAST CANCER
     Dosage: UNKNOWN
     Route: 065
  11. ZOMETA [Suspect]
     Indication: BREAST CANCER
     Dosage: UNKNOWN
     Route: 065

REACTIONS (6)
  - Pleural effusion [Unknown]
  - Lung infiltration [Unknown]
  - Nervous system disorder [Unknown]
  - Metastases to bone [Unknown]
  - Disease progression [Not Recovered/Not Resolved]
  - Metastases to liver [Not Recovered/Not Resolved]
